FAERS Safety Report 9551840 (Version 3)
Quarter: 2014Q2

REPORT INFORMATION
  Report Type: Spontaneous
  Country: US (occurrence: US)
  Receive Date: 20130925
  Receipt Date: 20140430
  Transmission Date: 20141212
  Serious: Yes (Hospitalization, Other)
  Sender: FDA-Public Use
  Company Number: US-BAYER-2013-115685

PATIENT
  Age: 27 Year
  Sex: Female
  Weight: 56.69 kg

DRUGS (2)
  1. MIRENA [Suspect]
     Indication: CONTRACEPTION
     Dosage: 20 MCG/24HR, CONT
     Route: 015
     Dates: start: 20100409, end: 20120320
  2. LORTAB [Concomitant]

REACTIONS (6)
  - Gastric ulcer [None]
  - Uterine perforation [None]
  - Device dislocation [None]
  - Emotional distress [None]
  - Injury [None]
  - Abdominal pain [None]
